FAERS Safety Report 9995417 (Version 6)
Quarter: 2014Q2

REPORT INFORMATION
  Report Type: Spontaneous
  Country: IT (occurrence: None)
  Receive Date: 20140307
  Receipt Date: 20140516
  Transmission Date: 20141212
  Serious: Yes (Other)
  Sender: FDA-Public Use
  Company Number: AUR-APL-2014-02573

PATIENT
  Age: 48 Year
  Sex: Male

DRUGS (3)
  1. RAMIPRIL [Suspect]
     Indication: HYPERTENSION
     Dosage: (10 MG,1 D), ORAL
     Route: 048
     Dates: start: 20130101, end: 20131220
  2. CRESTOR [Concomitant]
  3. GLICLAZIDE (GLICLAZIDE) [Concomitant]

REACTIONS (5)
  - Formication [None]
  - Loss of consciousness [None]
  - Presyncope [None]
  - Vertigo [None]
  - Orthostatic hypotension [None]
